FAERS Safety Report 15382243 (Version 1)
Quarter: 2018Q3

REPORT INFORMATION
  Report Type: Spontaneous
  Country: US (occurrence: US)
  Receive Date: 20180913
  Receipt Date: 20180913
  Transmission Date: 20181010
  Serious: No
  Sender: FDA-Public Use
  Company Number: US-ASTELLAS-2018US009566

PATIENT
  Age: 71 Year
  Sex: Male

DRUGS (5)
  1. XTANDI [Suspect]
     Active Substance: ENZALUTAMIDE
     Dosage: UNK UNK, UNKNOWN FREQ.
     Route: 065
  2. PROVENGE [Suspect]
     Active Substance: SIPULEUCEL-T
     Dosage: UNK UNK, UNKNOWN FREQ.
     Route: 065
     Dates: start: 20180125
  3. PROVENGE [Suspect]
     Active Substance: SIPULEUCEL-T
     Dosage: UNK UNK, UNKNOWN FREQ.
     Route: 065
     Dates: start: 20180208
  4. XTANDI [Suspect]
     Active Substance: ENZALUTAMIDE
     Indication: HORMONE-REFRACTORY PROSTATE CANCER
     Dosage: UNK UNK, UNKNOWN FREQ.
     Route: 065
     Dates: start: 20180102
  5. PROVENGE [Suspect]
     Active Substance: SIPULEUCEL-T
     Indication: HORMONE-REFRACTORY PROSTATE CANCER
     Dosage: UNK UNK, UNKNOWN FREQ.
     Route: 065
     Dates: start: 20180111

REACTIONS (1)
  - Oedema peripheral [Not Recovered/Not Resolved]

NARRATIVE: CASE EVENT DATE: 20180210
